FAERS Safety Report 21225595 (Version 7)
Quarter: 2024Q1

REPORT INFORMATION
  Report Type: Report from Study
  Country: ES (occurrence: ES)
  Receive Date: 20220818
  Receipt Date: 20240116
  Transmission Date: 20240409
  Serious: Yes (Hospitalization, Disabling)
  Sender: FDA-Public Use
  Company Number: ES-JNJFOC-20220829260

PATIENT
  Age: 50 Year
  Sex: Female

DRUGS (4)
  1. SIMPONI [Suspect]
     Active Substance: GOLIMUMAB
     Indication: Colitis ulcerative
     Dosage: MOST RECENT DOSE ON 24-MAR-2021
     Route: 058
     Dates: start: 20181129
  2. SIMPONI [Suspect]
     Active Substance: GOLIMUMAB
     Route: 058
     Dates: start: 20200130
  3. AZATHIOPRINE [Suspect]
     Active Substance: AZATHIOPRINE
     Indication: Product used for unknown indication
     Dosage: DATE OF MOST RECENT DOSE-24-MAR-2021
     Route: 065
     Dates: start: 20200130
  4. MESALAMINE [Concomitant]
     Active Substance: MESALAMINE
     Dates: start: 20200130

REACTIONS (1)
  - Anal cancer [Not Recovered/Not Resolved]

NARRATIVE: CASE EVENT DATE: 20210324
